FAERS Safety Report 8428642-7 (Version None)
Quarter: 2012Q2

REPORT INFORMATION
  Report Type: 
  Country: None (occurrence: None)
  Receive Date: 20120606
  Receipt Date: 20120606
  Transmission Date: 20120825
  Serious: Yes (Hospitalization)
  Sender: FDA-Public Use
  Company Number: None

PATIENT
  Age: 75 Year
  Sex: Male
  Weight: 89.3586 kg

DRUGS (7)
  1. THALOMID [Suspect]
     Indication: INVESTIGATION
     Dosage: QD/PO
     Route: 048
     Dates: start: 20111201, end: 20120516
  2. INDAPAMIDE [Concomitant]
  3. LEVOTHYROXINE SODIUM [Concomitant]
  4. POTASSIUM ACETATE [Concomitant]
  5. CLONAZEPAM [Concomitant]
  6. ARICEPT [Concomitant]
  7. NAMENDA [Concomitant]

REACTIONS (1)
  - EMBOLISM VENOUS [None]
